FAERS Safety Report 6348722-X (Version None)
Quarter: 2009Q3

REPORT INFORMATION
  Report Type: 
  Country: None (occurrence: None)
  Receive Date: 20090911
  Receipt Date: 20090901
  Transmission Date: 20100115
  Serious: Yes (Other)
  Sender: FDA-Public Use
  Company Number: PHHY2009FI37412

PATIENT
  Age: 66 Year
  Sex: Female

DRUGS (1)
  1. LESCOL [Suspect]
     Indication: BLOOD CHOLESTEROL
     Dosage: 80 MG, UNK
     Route: 048
     Dates: start: 20090826

REACTIONS (13)
  - ACARODERMATITIS [None]
  - ERYTHEMA [None]
  - FEELING ABNORMAL [None]
  - HYPERSENSITIVITY [None]
  - LIP SWELLING [None]
  - NAUSEA [None]
  - OROPHARYNGEAL PAIN [None]
  - PAIN [None]
  - PARAESTHESIA ORAL [None]
  - PHARYNGEAL OEDEMA [None]
  - PRURITUS [None]
  - THIRST [None]
  - THROAT TIGHTNESS [None]
